FAERS Safety Report 4734268-9 (Version None)
Quarter: 2005Q3

REPORT INFORMATION
  Report Type: 
  Country: None (occurrence: None)
  Receive Date: 20050721
  Receipt Date: 20050418
  Transmission Date: 20060218
  Serious: No
  Sender: FDA-Public Use
  Company Number: 2005SP000233

PATIENT
  Age: 76 Year
  Sex: Male
  Weight: 77.1115 kg

DRUGS (11)
  1. LUNESTA [Suspect]
     Indication: INSOMNIA
     Dosage: 2 MG;HS;ORAL;  3 MG;HS;ORAL; 1 MG;X1; ORAL; 3 MG; HS;ORAL
     Route: 048
     Dates: start: 20050408, end: 20050410
  2. LUNESTA [Suspect]
     Indication: INSOMNIA
     Dosage: 2 MG;HS;ORAL;  3 MG;HS;ORAL; 1 MG;X1; ORAL; 3 MG; HS;ORAL
     Route: 048
     Dates: start: 20050411, end: 20050411
  3. LUNESTA [Suspect]
     Indication: INSOMNIA
     Dosage: 2 MG;HS;ORAL;  3 MG;HS;ORAL; 1 MG;X1; ORAL; 3 MG; HS;ORAL
     Route: 048
     Dates: start: 20050411, end: 20050411
  4. LUNESTA [Suspect]
     Indication: INSOMNIA
     Dosage: 2 MG;HS;ORAL;  3 MG;HS;ORAL; 1 MG;X1; ORAL; 3 MG; HS;ORAL
     Route: 048
     Dates: start: 20050412, end: 20050413
  5. VITORIN [Concomitant]
  6. LEXAPRO [Concomitant]
  7. HYZAAR [Concomitant]
  8. ENALAPRIL [Concomitant]
  9. VICODIN [Concomitant]
  10. HYDROXYZINE [Concomitant]
  11. VALIUM [Concomitant]

REACTIONS (2)
  - ABNORMAL DREAMS [None]
  - INITIAL INSOMNIA [None]
